FAERS Safety Report 8624443-5 (Version None)
Quarter: 2012Q3

REPORT INFORMATION
  Report Type: 
  Country: None (occurrence: None)
  Receive Date: 20120827
  Receipt Date: 20120822
  Transmission Date: 20120928
  Serious: Yes (Hospitalization, Other)
  Sender: FDA-Public Use
  Company Number: US-PFIZER INC-2012207085

PATIENT
  Age: 81 Year
  Sex: Female

DRUGS (9)
  1. EXCEDRIN (MIGRAINE) [Suspect]
     Indication: HEADACHE
  2. LIPITOR [Suspect]
     Indication: BLOOD CHOLESTEROL INCREASED
     Dosage: UNK
  3. EXCEDRIN (MIGRAINE) [Suspect]
     Indication: PAIN
     Dosage: AS DIRECTED
     Route: 048
  4. ATENOLOL [Concomitant]
     Dosage: UNK
  5. EXCEDRIN (MIGRAINE) [Suspect]
  6. BIAXIN [Concomitant]
     Dosage: UNK
  7. EXCEDRIN (MIGRAINE) [Suspect]
     Dosage: 2-3 DF, PRN
     Route: 048
  8. TOFRANIL [Concomitant]
     Dosage: UNK
  9. XANAX [Concomitant]
     Dosage: UNK

REACTIONS (9)
  - FALL [None]
  - UPPER LIMB FRACTURE [None]
  - MOVEMENT DISORDER [None]
  - TENDONITIS [None]
  - MUSCLE TIGHTNESS [None]
  - MUSCLE STRAIN [None]
  - PAIN [None]
  - DIVERTICULITIS [None]
  - BLOOD CHOLESTEROL INCREASED [None]
